FAERS Safety Report 16035024 (Version 1)
Quarter: 2019Q1

REPORT INFORMATION
  Report Type: Report from Study
  Country: US (occurrence: US)
  Receive Date: 20190305
  Receipt Date: 20190305
  Transmission Date: 20190418
  Serious: Yes (Other)
  Sender: FDA-Public Use
  Company Number: US-PFIZER INC-2019091898

PATIENT

DRUGS (4)
  1. GEMCITABINE HYDROCHLORIDE. [Suspect]
     Active Substance: GEMCITABINE HYDROCHLORIDE
     Indication: CHOLANGIOCARCINOMA
     Dosage: UNK (EVERY 2 WEEKS)
     Route: 025
  2. OXALIPLATIN. [Suspect]
     Active Substance: OXALIPLATIN
     Indication: CHOLANGIOCARCINOMA
     Dosage: UNK (EVERY 2 WEEKS)
     Route: 025
  3. DEXAMETHASONE. [Suspect]
     Active Substance: DEXAMETHASONE
     Indication: CHOLANGIOCARCINOMA
     Dosage: UNK (EVERY 2 WEEKS)
     Route: 025
  4. FLOXURIDINE. [Suspect]
     Active Substance: FLOXURIDINE
     Indication: CHOLANGIOCARCINOMA
     Dosage: UNK (EVERY 2 WEEKS)
     Route: 025

REACTIONS (1)
  - Portal hypertension [Unknown]
